FAERS Safety Report 17577256 (Version 1)
Quarter: 2020Q1

REPORT INFORMATION
  Report Type: Spontaneous
  Country: US (occurrence: US)
  Receive Date: 20200324
  Receipt Date: 20200324
  Transmission Date: 20200409
  Serious: No
  Sender: FDA-Public Use
  Company Number: None

PATIENT
  Age: 73 Year
  Sex: Female
  Weight: 73.8 kg

DRUGS (1)
  1. RITUXAN [Suspect]
     Active Substance: RITUXIMAB
     Indication: MYASTHENIA GRAVIS
     Dosage: ?          OTHER FREQUENCY:QOW X 2 DOSES;?
     Route: 042
     Dates: start: 20200323

REACTIONS (3)
  - Dysphagia [None]
  - Incorrect drug administration rate [None]
  - Throat tightness [None]

NARRATIVE: CASE EVENT DATE: 20200323
